FAERS Safety Report 7344741-5 (Version None)
Quarter: 2011Q1

REPORT INFORMATION
  Report Type: 
  Country: None (occurrence: None)
  Receive Date: 20110228
  Receipt Date: 20110215
  Transmission Date: 20110831
  Serious: Yes (Death, Hospitalization)
  Sender: FDA-Public Use
  Company Number: BR-001534

PATIENT
  Sex: Male
  Weight: 20 kg

DRUGS (1)
  1. NAGLAZYME [Suspect]
     Indication: MUCOPOLYSACCHARIDOSIS VI
     Dosage: (4 VIALS WEEKLY INTRAVENOUS DRIP)
     Route: 041
     Dates: start: 20071022

REACTIONS (1)
  - CARDIO-RESPIRATORY ARREST [None]
